FAERS Safety Report 7506678-8 (Version None)
Quarter: 2011Q2

REPORT INFORMATION
  Report Type: 
  Country: None (occurrence: None)
  Receive Date: 20110526
  Receipt Date: 20110516
  Transmission Date: 20111010
  Serious: Yes (Other)
  Sender: FDA-Public Use
  Company Number: CA-ELI_LILLY_AND_COMPANY-CA201105004268

PATIENT
  Sex: Female
  Weight: 56.689 kg

DRUGS (21)
  1. PERIDOL [Concomitant]
  2. TOPAMAX [Concomitant]
  3. TEMAZEPAM [Concomitant]
  4. CELEXA [Concomitant]
  5. TRAZODONE HCL [Concomitant]
  6. ZYPREXA [Suspect]
     Dosage: 2.5 MG, UNKNOWN
     Route: 048
  7. ZYPREXA [Suspect]
     Dosage: 15 MG, UNKNOWN
     Route: 048
  8. PAXIL [Concomitant]
  9. BUSPIRONE HCL [Concomitant]
  10. PIMOZIDE [Concomitant]
  11. ZOPICLONE [Concomitant]
  12. SEROQUEL [Concomitant]
  13. WELLBUTRIN [Concomitant]
  14. ZYPREXA [Suspect]
     Dosage: 5 MG, UNKNOWN
     Route: 048
  15. ZYPREXA [Suspect]
     Dosage: 25 MG, UNKNOWN
     Route: 048
  16. LITHIUM CARBONATE [Concomitant]
  17. LORAZEPAM [Concomitant]
  18. ZYPREXA [Suspect]
     Indication: BIPOLAR DISORDER
     Dosage: 7.5 MG, UNKNOWN
     Route: 048
  19. ZYPREXA [Suspect]
     Dosage: 10 MG, UNKNOWN
  20. ZYPREXA [Suspect]
     Dosage: 20 MG, UNKNOWN
     Route: 065
     Dates: end: 20070101
  21. LAMOTRIGINE [Concomitant]

REACTIONS (24)
  - GINGIVAL BLEEDING [None]
  - OVERDOSE [None]
  - NEPHROLITHIASIS [None]
  - MUSCULOSKELETAL CHEST PAIN [None]
  - ALANINE AMINOTRANSFERASE INCREASED [None]
  - DIABETIC NEUROPATHY [None]
  - GAIT DISTURBANCE [None]
  - CELLULITIS [None]
  - TYPE 2 DIABETES MELLITUS [None]
  - MUSCLE SPASMS [None]
  - DYSLIPIDAEMIA [None]
  - UPPER RESPIRATORY TRACT INFECTION [None]
  - ORAL CANDIDIASIS [None]
  - IMPAIRED HEALING [None]
  - MUSCULOSKELETAL STIFFNESS [None]
  - SLEEP APNOEA SYNDROME [None]
  - OTITIS EXTERNA [None]
  - NEPHROPATHY [None]
  - WEIGHT INCREASED [None]
  - HYPERTENSION [None]
  - HEART RATE INCREASED [None]
  - INFECTION [None]
  - GINGIVAL INFECTION [None]
  - VARICOSE VEIN [None]
